FAERS Safety Report 6489813-2 (Version None)
Quarter: 2009Q4

REPORT INFORMATION
  Report Type: 
  Country: None (occurrence: None)
  Receive Date: 20091211
  Receipt Date: 20091202
  Transmission Date: 20100525
  Serious: Yes (Hospitalization)
  Sender: FDA-Public Use
  Company Number: FR-BIOGENIDEC-2008BI022184

PATIENT
  Age: 34 Year
  Sex: Male

DRUGS (2)
  1. TYSABRI [Suspect]
     Indication: MULTIPLE SCLEROSIS
     Route: 042
     Dates: start: 20070921, end: 20080801
  2. TYSABRI [Suspect]
     Route: 042
     Dates: end: 20090127

REACTIONS (2)
  - DERMATOSIS [None]
  - FOLLICULITIS [None]
